FAERS Safety Report 7207219-5 (Version None)
Quarter: 2010Q4

REPORT INFORMATION
  Report Type: 
  Country: None (occurrence: None)
  Receive Date: 20101230
  Receipt Date: 20101230
  Transmission Date: 20110411
  Serious: No
  Sender: FDA-Public Use
  Company Number: None

PATIENT
  Age: 61 Year
  Sex: Male
  Weight: 92.9874 kg

DRUGS (1)
  1. MULTAQ [Suspect]
     Indication: ATRIAL FIBRILLATION
     Dosage: 400 MG TWICE A DAY
     Dates: start: 20100625, end: 20101227

REACTIONS (4)
  - DIZZINESS [None]
  - HEADACHE [None]
  - HYPOAESTHESIA ORAL [None]
  - TINNITUS [None]
